FAERS Safety Report 4889332-0 (Version None)
Quarter: 2006Q1

REPORT INFORMATION
  Report Type: 
  Country: None (occurrence: None)
  Receive Date: 20060120
  Receipt Date: 20060120
  Transmission Date: 20060701
  Serious: Yes (Hospitalization)
  Sender: FDA-Public Use
  Company Number: None

PATIENT
  Sex: Male

DRUGS (14)
  1. FENTANYL [Suspect]
     Indication: PAIN
     Dosage: 1 PATCH   Q 72 HOURS  TOP
     Route: 061
  2. ASPIRIN [Concomitant]
  3. COMBIVENT [Concomitant]
  4. FELODIPINE [Concomitant]
  5. FINASTERIDE [Concomitant]
  6. FLUTICASONE/SALMETEROL [Concomitant]
  7. GUAFENESIN [Concomitant]
  8. LISINOPRIL [Concomitant]
  9. LORAZEPAM [Concomitant]
  10. PERPHENAZINE [Concomitant]
  11. PROPOXYPHENE HYDROCHLORIDE CAP [Concomitant]
  12. RISPERIDONE [Concomitant]
  13. VALPROIC ACID [Concomitant]
  14. WARFARIN [Concomitant]

REACTIONS (2)
  - LETHARGY [None]
  - MENTAL STATUS CHANGES [None]
